FAERS Safety Report 24757465 (Version 2)
Quarter: 2024Q4

REPORT INFORMATION
  Report Type: Spontaneous
  Country: US (occurrence: US)
  Receive Date: 20241220
  Receipt Date: 20241226
  Transmission Date: 20250114
  Serious: Yes (Life-Threatening, Hospitalization, Disabling, Other)
  Sender: GLENMARK
  Company Number: US-GLENMARK PHARMACEUTICALS-2024GMK096268

PATIENT

DRUGS (3)
  1. METFORMIN HYDROCHLORIDE [Suspect]
     Active Substance: METFORMIN HYDROCHLORIDE
     Indication: Type 2 diabetes mellitus
     Dosage: UNK
     Route: 065
  2. ROSUVASTATIN CALCIUM [Suspect]
     Active Substance: ROSUVASTATIN CALCIUM
     Indication: Hyperlipidaemia
     Dosage: UNK
     Route: 065
  3. LISINOPRIL [Suspect]
     Active Substance: LISINOPRIL
     Indication: Hypertension
     Dosage: UNK
     Route: 065

REACTIONS (13)
  - Leukocytosis [Unknown]
  - Acute kidney injury [Unknown]
  - Hyperkalaemia [Unknown]
  - Lacunar infarction [Unknown]
  - Encephalopathy [Recovered/Resolved]
  - Blindness [Not Recovered/Not Resolved]
  - Tachycardia [Unknown]
  - Tachypnoea [Unknown]
  - Hypotension [Unknown]
  - Hypothermia [Unknown]
  - Blood lactic acid increased [Unknown]
  - Lactic acidosis [Recovering/Resolving]
  - Metabolic acidosis [Unknown]
